FAERS Safety Report 7418413-2 (Version None)
Quarter: 2011Q2

REPORT INFORMATION
  Report Type: 
  Country: None (occurrence: None)
  Receive Date: 20110415
  Receipt Date: 20110413
  Transmission Date: 20111010
  Serious: Yes (Other)
  Sender: FDA-Public Use
  Company Number: VE-PFIZER INC-2011064085

PATIENT
  Age: 71 Year
  Sex: Female

DRUGS (2)
  1. ZOLOFT [Concomitant]
     Indication: DEPRESSION
     Dosage: 50 MG, 1X/DAY
     Route: 048
     Dates: end: 20110101
  2. LIPITOR [Suspect]
     Indication: STENT PLACEMENT
     Dosage: 40 MG, 1X/DAY
     Route: 048
     Dates: start: 20070801

REACTIONS (2)
  - BURSITIS [None]
  - ROTATOR CUFF SYNDROME [None]
